FAERS Safety Report 6369799-1 (Version None)
Quarter: 2009Q3

REPORT INFORMATION
  Report Type: 
  Country: None (occurrence: None)
  Receive Date: 20090918
  Receipt Date: 20090904
  Transmission Date: 20100115
  Serious: No
  Sender: FDA-Public Use
  Company Number: 20096906

PATIENT
  Sex: Female

DRUGS (3)
  1. LIORESAL [Suspect]
     Indication: MUSCLE SPASTICITY
     Dosage: MCG, DAILY, INTRATHECAL
     Route: 037
  2. MORPHINE [Concomitant]
  3. BUPIVACAINE [Concomitant]

REACTIONS (7)
  - COGNITIVE DISORDER [None]
  - DEVICE ELECTRICAL FINDING [None]
  - DEVICE FAILURE [None]
  - INFLUENZA LIKE ILLNESS [None]
  - INJURY [None]
  - NECK PAIN [None]
  - PAIN [None]
